FAERS Safety Report 7152560-8 (Version None)
Quarter: 2010Q4

REPORT INFORMATION
  Report Type: 
  Country: None (occurrence: None)
  Receive Date: 20101209
  Receipt Date: 20101209
  Transmission Date: 20110411
  Serious: Yes (Other)
  Sender: FDA-Public Use
  Company Number: None

PATIENT
  Sex: Male
  Weight: 71.6 kg

DRUGS (3)
  1. OXALIPLATIN [Suspect]
     Indication: OESOPHAGEAL CARCINOMA
     Dosage: 180MG ONCE IV
     Route: 042
     Dates: start: 20101129
  2. EPIRUBICIN [Suspect]
     Indication: OESOPHAGEAL CARCINOMA
     Dosage: 35MG ONCE CONT INFUS IV
     Route: 042
     Dates: start: 20101129
  3. FLUOROURACIL [Suspect]
     Indication: OESOPHAGEAL CARCINOMA
     Dosage: 1965MG ONCE CONT INFUS IV OVER 7 DAYS
     Route: 042
     Dates: start: 20101129

REACTIONS (4)
  - DIARRHOEA [None]
  - NAUSEA [None]
  - VOMITING [None]
  - WEIGHT DECREASED [None]
